FAERS Safety Report 8270258 (Version 3)
Quarter: 2012Q4

REPORT INFORMATION
  Report Type: 
  Country: AT (occurrence: None)
  Receive Date: 20111123
  Receipt Date: 20121123
  Transmission Date: 20130627
  Serious: Yes (Other)
  Sender: FDA-Public Use
  Company Number: 2011-4483

PATIENT
  Age: 15 Year
  Sex: Female
  Weight: 42.1 kg

DRUGS (6)
  1. INCRELEX [Suspect]
     Indication: PRIMARY INSULIN LIKE GROWTH FACTOR-1 DEFICIENCY
     Dosage: 260 UG/KG (130 ug/kg, 2 in 1 d)
     Dates: start: 20110228
  2. INCRELEX [Suspect]
     Indication: PRIMARY INSULIN LIKE GROWTH FACTOR-1 DEFICIENCY
     Dosage: 188 UG/KG (94 ug/kg, 2 in 1 d)
     Dates: start: 20080220, end: 20090215
  3. INCRELEX [Suspect]
     Indication: PRIMARY INSULIN LIKE GROWTH FACTOR-1 DEFICIENCY
     Dosage: 260 UG/KG (130 UG/KG, 2 in 1 d)
     Dates: start: 20090216, end: 20100216
  4. INCRELEX [Suspect]
     Indication: PRIMARY INSULIN LIKE GROWTH FACTOR-1 DEFICIENCY
     Dosage: 272 UG/KG 136 UG/KG, 2 in 1 d)
     Dates: start: 20100217, end: 20110227
  5. INCRELEX [Suspect]
     Indication: PRIMARY INSULIN LIKE GROWTH FACTOR-1 DEFICIENCY
     Dosage: 238 UG/KG 119 UG/KG, 2 in 1 d)
     Dates: start: 201107, end: 201109
  6. INCRELEX [Suspect]
     Indication: PRIMARY INSULIN LIKE GROWTH FACTOR-1 DEFICIENCY
     Dosage: 100 UG/KG (50 UG/KG, 2 in 1 d)
     Dates: start: 201109, end: 20111224

REACTIONS (4)
  - WEIGHT INCREASED [None]
  - MENTAL DISORDER [None]
  - SOFT TISSUE DISORDER [None]
  - HYPERTROPHY [None]
